FAERS Safety Report 8840014 (Version 1)
Quarter: 2012Q4

REPORT INFORMATION
  Report Type: 
  Country: US (occurrence: US)
  Receive Date: 20121015
  Receipt Date: 20121015
  Transmission Date: 20130627
  Serious: No
  Sender: FDA-Public Use
  Company Number: US-PFIZER INC-2012253344

PATIENT
  Sex: Male
  Weight: 83.9 kg

DRUGS (4)
  1. OXYCODONE HYDROCHLORIDE [Suspect]
     Indication: PAIN
     Dosage: UNK
  2. VICODIN [Suspect]
     Indication: PAIN
     Dosage: UNK
  3. PERCOCET [Suspect]
     Indication: PAIN
     Dosage: UNK
  4. CRESTOR [Concomitant]
     Indication: HYPERTENSION
     Dosage: UNK

REACTIONS (1)
  - Drug tolerance [Unknown]
